FAERS Safety Report 24524268 (Version 1)
Quarter: 2024Q4

REPORT INFORMATION
  Report Type: Spontaneous
  Country: JP (occurrence: None)
  Receive Date: 20241018
  Receipt Date: 20241018
  Transmission Date: 20250115
  Serious: Yes (Death, Other)
  Sender: ALEXION PHARMACEUTICALS
  Company Number: JP-ASTRAZENECA-240107019_064320_P_1

PATIENT
  Age: 81 Year

DRUGS (3)
  1. ANDEXXA [Suspect]
     Active Substance: ANDEXANET ALFA
     Indication: Subarachnoid haemorrhage
     Dosage: DOSE UNKNOWN
  2. TRANEXAMIC ACID [Suspect]
     Active Substance: TRANEXAMIC ACID
     Indication: Subarachnoid haemorrhage
     Dosage: DOSE UNKNOWN
  3. RIVAROXABAN [Concomitant]
     Active Substance: RIVAROXABAN
     Dosage: DOSE UNKNOWN

REACTIONS (1)
  - Aortic occlusion [Fatal]
